FAERS Safety Report 10652980 (Version 3)
Quarter: 2015Q1

REPORT INFORMATION
  Report Type: Spontaneous
  Country: US (occurrence: US)
  Receive Date: 20141215
  Receipt Date: 20150205
  Transmission Date: 20150720
  Serious: No
  Sender: FDA-Public Use
  Company Number: US-PFIZER INC-2014343251

PATIENT
  Age: 41 Year
  Sex: Female

DRUGS (1)
  1. CELEBREX [Suspect]
     Active Substance: CELECOXIB
     Indication: ARTHRALGIA
     Dosage: 10 MG, 2X/DAY (10MG BID)

REACTIONS (2)
  - Rash [Unknown]
  - Drug hypersensitivity [Recovered/Resolved]
